FAERS Safety Report 6089405-3 (Version None)
Quarter: 2009Q1

REPORT INFORMATION
  Report Type: 
  Country: None (occurrence: None)
  Receive Date: 20090224
  Receipt Date: 20090212
  Transmission Date: 20090719
  Serious: Yes (Other)
  Sender: FDA-Public Use
  Company Number: JP-ROCHE-615542

PATIENT
  Age: 43 Year
  Sex: Female

DRUGS (3)
  1. CELLCEPT [Suspect]
     Route: 048
  2. TACROLIMUS [Concomitant]
     Route: 048
  3. SIMULECT [Concomitant]
     Dosage: ROUTE: INJECTABLE (NOT OTHERWISE SPECIFIED)
     Route: 050

REACTIONS (2)
  - HISTIOCYTOSIS HAEMATOPHAGIC [None]
  - LIVER DISORDER [None]
